FAERS Safety Report 9700801 (Version 2)
Quarter: 2013Q4

REPORT INFORMATION
  Report Type: Report from Study
  Country: CA (occurrence: CA)
  Receive Date: 20131121
  Receipt Date: 20131217
  Transmission Date: 20140711
  Serious: Yes (Death, Hospitalization, Disabling)
  Sender: FDA-Public Use
  Company Number: PHHY2013CA133038

PATIENT
  Age: 79 Year
  Sex: Female

DRUGS (3)
  1. CLOZARIL [Suspect]
     Indication: DEMENTIA
     Dosage: UNK (6.25 / 18.75)
     Route: 048
     Dates: start: 2010
  2. CLOZARIL [Suspect]
     Dosage: UNK
     Dates: start: 20110228
  3. CLOZARIL [Suspect]
     Dosage: UNK
     Route: 048
     Dates: end: 2013

REACTIONS (1)
  - Death [Fatal]
